FAERS Safety Report 15908356 (Version 1)
Quarter: 2019Q1

REPORT INFORMATION
  Report Type: Spontaneous
  Country: US (occurrence: US)
  Receive Date: 20190204
  Receipt Date: 20190204
  Transmission Date: 20190417
  Serious: No
  Sender: FDA-Public Use
  Company Number: US-ABBVIE-18K-163-2289321-00

PATIENT
  Sex: Female
  Weight: 67.2 kg

DRUGS (4)
  1. HYDROXYCHLOROQUINE [Concomitant]
     Active Substance: HYDROXYCHLOROQUINE
     Indication: PRODUCT USED FOR UNKNOWN INDICATION
     Route: 065
  2. HUMIRA [Suspect]
     Active Substance: ADALIMUMAB
     Indication: RHEUMATOID ARTHRITIS
     Route: 058
  3. ACTEMRA [Concomitant]
     Active Substance: TOCILIZUMAB
     Indication: PRODUCT USED FOR UNKNOWN INDICATION
     Route: 065
  4. MTX [Suspect]
     Active Substance: METHOTREXATE SODIUM
     Indication: PRODUCT USED FOR UNKNOWN INDICATION
     Route: 065

REACTIONS (24)
  - Joint stiffness [Unknown]
  - Neck pain [Unknown]
  - Drug effect decreased [Unknown]
  - Dry skin [Unknown]
  - Vulvovaginal discomfort [Not Recovered/Not Resolved]
  - Fatigue [Unknown]
  - Chest pain [Unknown]
  - Vaginal exfoliation [Not Recovered/Not Resolved]
  - Fibromyalgia [Unknown]
  - Arthralgia [Unknown]
  - Panic attack [Unknown]
  - Migraine [Unknown]
  - Chest discomfort [Unknown]
  - Pruritus [Unknown]
  - Dyspnoea [Unknown]
  - Fungal infection [Unknown]
  - Drug specific antibody present [Unknown]
  - Anxiety [Unknown]
  - Dry eye [Unknown]
  - Back pain [Unknown]
  - Gastrointestinal disorder [Unknown]
  - Inflammatory marker increased [Unknown]
  - Diarrhoea [Unknown]
  - Rash [Unknown]
